FAERS Safety Report 8181605-1 (Version None)
Quarter: 2012Q1

REPORT INFORMATION
  Report Type: 
  Country: None (occurrence: None)
  Receive Date: 20120302
  Receipt Date: 20120221
  Transmission Date: 20120608
  Serious: Yes (Other)
  Sender: FDA-Public Use
  Company Number: US-MYLANLABS-2012S1004087

PATIENT
  Age: 75 Year
  Sex: Female
  Weight: 61.24 kg

DRUGS (5)
  1. PLAVIX [Concomitant]
     Dosage: UNKNOWN DATE OVER FIVE YEARS
  2. DIGOXIN [Concomitant]
     Dosage: UNKNOWN DATE OVER THE FIVE YEARS
  3. NIFEDIPINE [Suspect]
     Indication: HYPERTENSION
     Dates: start: 20111201, end: 20120115
  4. WARFARIN SODIUM [Concomitant]
     Indication: ATRIAL FIBRILLATION
     Dosage: UNKNOWN DATE OVER FIVE YEARS
  5. VYTORIN [Concomitant]
     Indication: BLOOD CHOLESTEROL ABNORMAL
     Dosage: 10MG/40MG

REACTIONS (10)
  - TRANSIENT ISCHAEMIC ATTACK [None]
  - PULMONARY CONGESTION [None]
  - SPEECH DISORDER [None]
  - ASTHMA [None]
  - DYSPNOEA [None]
  - UNEVALUABLE EVENT [None]
  - BLOOD PRESSURE DECREASED [None]
  - WEIGHT DECREASED [None]
  - HYPERSENSITIVITY [None]
  - CARDIAC FAILURE CONGESTIVE [None]
